FAERS Safety Report 4744163-7 (Version None)
Quarter: 2005Q3

REPORT INFORMATION
  Report Type: 
  Country: None (occurrence: None)
  Receive Date: 20050812
  Receipt Date: 20050803
  Transmission Date: 20060218
  Serious: Yes (Death)
  Sender: FDA-Public Use
  Company Number: JP-JNJFOC-20050800742

PATIENT
  Sex: Male

DRUGS (4)
  1. TAVANIC [Suspect]
     Route: 042
     Dates: start: 20050727
  2. ESMERON [Suspect]
     Indication: ANAESTHESIA
     Route: 065
  3. DIPRIVAN [Suspect]
     Indication: ANAESTHESIA
     Route: 065
  4. ENALAPRIL [Concomitant]
     Indication: BLOOD PRESSURE
     Route: 065

REACTIONS (3)
  - ANAPHYLACTIC SHOCK [None]
  - MYOCARDIAL INFARCTION [None]
  - SUDDEN DEATH [None]
